FAERS Safety Report 13621783 (Version 1)
Quarter: 2017Q2

REPORT INFORMATION
  Report Type: Spontaneous
  Country: US (occurrence: US)
  Receive Date: 20170607
  Receipt Date: 20170607
  Transmission Date: 20170830
  Serious: No
  Sender: FDA-Public Use
  Company Number: US-ROCHE-1557522

PATIENT
  Age: 63 Year
  Sex: Female

DRUGS (4)
  1. XELODA [Suspect]
     Active Substance: CAPECITABINE
     Dosage: DIDN^T REMEMBER THE DOSE
     Route: 048
     Dates: start: 2014
  2. XELODA [Suspect]
     Active Substance: CAPECITABINE
     Dosage: 2 TABS EVERY MORNING AND 1 TAB EVERY EVENING
     Route: 048
     Dates: start: 20150319
  3. XELODA [Suspect]
     Active Substance: CAPECITABINE
     Indication: BREAST CANCER
     Dosage: TOTAL DOSE OF 3000MG A DAY/2 WEEKS ON/1 WEEK OFF
     Route: 048
     Dates: start: 201306, end: 201401
  4. CAPECITABINE. [Suspect]
     Active Substance: CAPECITABINE
     Indication: BREAST CANCER
     Dosage: 2 WEEKS ON/1 WEEK OFF
     Route: 048
     Dates: start: 201401

REACTIONS (11)
  - Palmar-plantar erythrodysaesthesia syndrome [Unknown]
  - Nail disorder [Not Recovered/Not Resolved]
  - Blister [Unknown]
  - Dry skin [Unknown]
  - Diarrhoea [Not Recovered/Not Resolved]
  - Skin fissures [Unknown]
  - Nausea [Not Recovered/Not Resolved]
  - Oesophageal pain [Not Recovered/Not Resolved]
  - Skin haemorrhage [Unknown]
  - Alopecia [Not Recovered/Not Resolved]
  - Fatigue [Not Recovered/Not Resolved]

NARRATIVE: CASE EVENT DATE: 20150319
